FAERS Safety Report 18285008 (Version 2)
Quarter: 2020Q3

REPORT INFORMATION
  Report Type: Report from Study
  Country: CN (occurrence: CN)
  Receive Date: 20200918
  Receipt Date: 20200922
  Transmission Date: 20201103
  Serious: Yes (Hospitalization, Other)
  Sender: FDA-Public Use
  Company Number: CN-BRISTOL-MYERS SQUIBB COMPANY-BMS-2020-063547

PATIENT
  Age: 63 Year
  Sex: Male

DRUGS (6)
  1. NIVOLUMAB [Suspect]
     Active Substance: NIVOLUMAB
     Dosage: 360 MILLIGRAM
     Route: 065
     Dates: start: 20200901, end: 20200901
  2. CISPLATIN. [Suspect]
     Active Substance: CISPLATIN
     Dosage: 31 MILLIGRAM
     Route: 065
     Dates: start: 20200901, end: 20200903
  3. NIVOLUMAB [Suspect]
     Active Substance: NIVOLUMAB
     Indication: LUNG NEOPLASM MALIGNANT
     Dosage: 360 MILLIGRAM
     Route: 065
     Dates: start: 20200728, end: 20200728
  4. DOCETAXEL. [Suspect]
     Active Substance: DOCETAXEL
     Dosage: 95 MILLIGRAM
     Route: 065
     Dates: start: 20200901, end: 20200901
  5. DOCETAXEL. [Suspect]
     Active Substance: DOCETAXEL
     Indication: LUNG NEOPLASM MALIGNANT
     Dosage: 131 MILLIGRAM
     Route: 065
     Dates: start: 20200728, end: 20200728
  6. CISPLATIN. [Suspect]
     Active Substance: CISPLATIN
     Indication: LUNG NEOPLASM MALIGNANT
     Dosage: 43 MILLIGRAM
     Route: 065
     Dates: start: 20200728, end: 20200730

REACTIONS (3)
  - Febrile neutropenia [Recovered/Resolved]
  - Diarrhoea [Recovering/Resolving]
  - Leukopenia [Recovered/Resolved]

NARRATIVE: CASE EVENT DATE: 20200803
